FAERS Safety Report 9577846 (Version 1)
Quarter: 2013Q4

REPORT INFORMATION
  Report Type: Spontaneous
  Country: US (occurrence: US)
  Receive Date: 20131001
  Receipt Date: 20131001
  Transmission Date: 20140711
  Serious: No
  Sender: FDA-Public Use
  Company Number: US-AMGEN-USASP2013010159

PATIENT
  Sex: Male

DRUGS (5)
  1. ENBREL [Suspect]
     Indication: PRODUCT USED FOR UNKNOWN INDICATION
     Dosage: 50 MG, QWK
     Route: 058
  2. SYNTHROID [Concomitant]
     Dosage: 150 MUG, UNK
  3. AMOXICILLIN [Concomitant]
     Dosage: 250 MG, UNK
  4. LIPITOR [Concomitant]
     Dosage: 20 MG, UNK
  5. PROTONIX [Concomitant]
     Dosage: 20 MG, UNK

REACTIONS (1)
  - Sinusitis [Unknown]
